FAERS Safety Report 4883030-5 (Version None)
Quarter: 2006Q1

REPORT INFORMATION
  Report Type: 
  Country: None (occurrence: None)
  Receive Date: 20060113
  Receipt Date: 20051223
  Transmission Date: 20060701
  Serious: Yes (Hospitalization)
  Sender: FDA-Public Use
  Company Number: ES200601000033

PATIENT
  Age: 79 Year
  Sex: Female

DRUGS (3)
  1. FORTEO [Suspect]
     Indication: OSTEOPOROSIS
     Dosage: 20 UG, DAILY (1/D), SUBCUTANEOUS
     Route: 058
     Dates: start: 20050928
  2. FORTEO PEN (FORTEO PEN) PEN DISPOSABLE [Concomitant]
  3. PHENYTOIN SODIUM [Concomitant]

REACTIONS (4)
  - CONDITION AGGRAVATED [None]
  - EMOTIONAL DISTRESS [None]
  - EPILEPSY [None]
  - FAMILY STRESS [None]
